FAERS Safety Report 13622267 (Version 1)
Quarter: 2017Q2

REPORT INFORMATION
  Report Type: Spontaneous
  Country: US (occurrence: US)
  Receive Date: 20170607
  Receipt Date: 20170607
  Transmission Date: 20170830
  Serious: No
  Sender: FDA-Public Use
  Company Number: US-ROCHE-1833374

PATIENT
  Sex: Male

DRUGS (2)
  1. XELODA [Suspect]
     Active Substance: CAPECITABINE
     Indication: NEOPLASM MALIGNANT
     Route: 048
     Dates: start: 20160803
  2. XELODA [Suspect]
     Active Substance: CAPECITABINE
     Route: 048

REACTIONS (6)
  - Fatigue [Unknown]
  - Palmar-plantar erythrodysaesthesia syndrome [Unknown]
  - Feeling abnormal [Unknown]
  - Therapeutic product ineffective [Unknown]
  - Blood pressure fluctuation [Unknown]
  - Rash [Unknown]
